FAERS Safety Report 8766670 (Version 2)
Quarter: 2012Q4

REPORT INFORMATION
  Report Type: 
  Country: SI (occurrence: SI)
  Receive Date: 20120904
  Receipt Date: 20120910
  Transmission Date: 20130627
  Serious: Yes (Death, Hospitalization, Other)
  Sender: FDA-Public Use
  Company Number: SI-CELGENEUS-261-50794-12082588

PATIENT
  Age: 62 Year
  Sex: Male
  Weight: 67 kg

DRUGS (4)
  1. VIDAZA [Suspect]
     Indication: MDS
     Dosage: 75 milligram/sq. meter
     Route: 065
     Dates: start: 20101210, end: 20120622
  2. CYKLOKAPRON [Concomitant]
     Indication: ANTIFIBRINOLYSIS
     Dosage: 3 Capsule
     Route: 065
  3. PRENESSA [Concomitant]
     Indication: HYPERTENSION
     Dosage: 4 Milligram
     Route: 065
  4. REVOLADE [Concomitant]
     Indication: THROMBOCYTOPENIA
     Dosage: 75 Milligram
     Route: 065

REACTIONS (5)
  - Septic shock [Fatal]
  - Multi-organ failure [Fatal]
  - Urosepsis [Unknown]
  - Pulmonary sepsis [Unknown]
  - Sepsis [Unknown]
